FAERS Safety Report 7460024-7 (Version None)
Quarter: 2011Q2

REPORT INFORMATION
  Report Type: 
  Country: None (occurrence: None)
  Receive Date: 20110427
  Receipt Date: 20110421
  Transmission Date: 20111010
  Serious: Yes (Hospitalization)
  Sender: FDA-Public Use
  Company Number: ACO_23549_2011

PATIENT
  Age: 64 Year
  Sex: Female

DRUGS (8)
  1. COPAXONE [Concomitant]
  2. CARBAMAZEPINE [Concomitant]
  3. ATENOLOL [Concomitant]
  4. OXYBUTYNIN [Concomitant]
  5. NORTRIPTYLINE (NORTRIPTYLINE) [Concomitant]
  6. SIMVASTATIN [Concomitant]
  7. AMPYRA [Suspect]
     Indication: GAIT DISTURBANCE
     Dosage: 10MG, Q 12 HRS, ORAL
     Route: 048
     Dates: start: 20110401, end: 20110401
  8. IBUPROFEN [Concomitant]

REACTIONS (6)
  - PAIN IN EXTREMITY [None]
  - ASTHENIA [None]
  - URINARY TRACT INFECTION [None]
  - DRUG INEFFECTIVE [None]
  - CONFUSIONAL STATE [None]
  - MUSCULAR WEAKNESS [None]
